FAERS Safety Report 5925935-X (Version None)
Quarter: 2008Q4

REPORT INFORMATION
  Report Type: 
  Country: None (occurrence: None)
  Receive Date: 20081021
  Receipt Date: 20081016
  Transmission Date: 20090506
  Serious: Yes (Other)
  Sender: FDA-Public Use
  Company Number: US-B.I. PHARMACEUTICALS,INC./RIDGEFIELD-2008-BP-15946BP

PATIENT
  Age: 68 Year
  Sex: Male

DRUGS (2)
  1. FLOMAX [Suspect]
     Indication: BENIGN PROSTATIC HYPERPLASIA
     Dosage: .4MG
     Route: 048
     Dates: start: 20071010, end: 20071219
  2. FLOMAX [Suspect]
     Indication: OBSTRUCTION

REACTIONS (5)
  - CHEST PAIN [None]
  - CHILLS [None]
  - PAROSMIA [None]
  - RHINORRHOEA [None]
  - SWELLING FACE [None]
